FAERS Safety Report 9458658 (Version 2)
Quarter: 2013Q3

REPORT INFORMATION
  Report Type: Report from Study
  Country: CA (occurrence: CA)
  Receive Date: 20130814
  Receipt Date: 20130816
  Transmission Date: 20140515
  Serious: Yes (Life-Threatening)
  Sender: FDA-Public Use
  Company Number: CA-ROCHE-1261465

PATIENT
  Age: 45 Year
  Sex: Female
  Weight: 104.3 kg

DRUGS (8)
  1. RITUXAN [Suspect]
     Indication: THROMBOTIC THROMBOCYTOPENIC PURPURA
     Route: 042
     Dates: start: 20130325
  2. ALTACE [Concomitant]
  3. HYDROCHLOROTHIAZIDE [Concomitant]
  4. FERROUS FUMARATE [Concomitant]
  5. FOLIC ACID [Concomitant]
  6. PREDNISONE [Concomitant]
  7. DEPO-PROVERA [Concomitant]
     Route: 065
     Dates: end: 2013
  8. VINCRISTINE [Concomitant]
     Route: 065
     Dates: start: 20130430

REACTIONS (2)
  - Myocardial infarction [Unknown]
  - Cerebrovascular accident [Unknown]
